FAERS Safety Report 4438972-1 (Version None)
Quarter: 2004Q3

REPORT INFORMATION
  Report Type: 
  Country: None (occurrence: None)
  Receive Date: 20040830
  Receipt Date: 20040819
  Transmission Date: 20050211
  Serious: Yes (Hospitalization)
  Sender: FDA-Public Use
  Company Number: 2004PK01411

PATIENT
  Age: 52 Year
  Sex: Male

DRUGS (8)
  1. LISINOPRIL [Suspect]
     Dosage: 10 MG DAILY PO
     Route: 048
  2. DICLOFENAC [Suspect]
     Indication: ARTHRALGIA
  3. SPIRONOLACTONE [Suspect]
     Dosage: 50 MG DAILY PO
     Route: 048
  4. DEPOT-INSULIN [Concomitant]
  5. BISOPROLOL FUMARATE [Concomitant]
  6. ASPIRIN [Concomitant]
  7. SIMVASTATIN [Concomitant]
  8. NEXIUM [Concomitant]

REACTIONS (12)
  - ASTHENIA [None]
  - CARDIAC FAILURE [None]
  - DRUG INTERACTION [None]
  - DRUG INTOLERANCE [None]
  - GASTRITIS EROSIVE [None]
  - GENERAL PHYSICAL HEALTH DETERIORATION [None]
  - HAEMODIALYSIS [None]
  - NAUSEA [None]
  - RENAL FAILURE ACUTE [None]
  - SOMNOLENCE [None]
  - THERAPY NON-RESPONDER [None]
  - VOMITING [None]
